FAERS Safety Report 7413499-3 (Version None)
Quarter: 2011Q2

REPORT INFORMATION
  Report Type: 
  Country: None (occurrence: None)
  Receive Date: 20110413
  Receipt Date: 20110408
  Transmission Date: 20111010
  Serious: Yes (Death, Hospitalization)
  Sender: FDA-Public Use
  Company Number: PHHY2011US03192

PATIENT
  Sex: Male

DRUGS (1)
  1. EXJADE [Suspect]
     Indication: SICKLE CELL TRAIT
     Dosage: 1500 MG DAILY
     Route: 048
     Dates: start: 20100729

REACTIONS (11)
  - ABDOMINAL DISCOMFORT [None]
  - PYREXIA [None]
  - ABDOMINAL COMPARTMENT SYNDROME [None]
  - TACHYPNOEA [None]
  - ACIDOSIS [None]
  - GASTROINTESTINAL ISCHAEMIA [None]
  - COLITIS ISCHAEMIC [None]
  - SEPSIS [None]
  - SICKLE CELL ANAEMIA WITH CRISIS [None]
  - TACHYCARDIA [None]
  - RENAL IMPAIRMENT [None]
